FAERS Safety Report 19063573 (Version 1)
Quarter: 2021Q1

REPORT INFORMATION
  Report Type: Spontaneous
  Country: JP (occurrence: JP)
  Receive Date: 20210326
  Receipt Date: 20210326
  Transmission Date: 20210420
  Serious: Yes (Hospitalization)
  Sender: FDA-Public Use
  Company Number: JP-PFIZER INC-2021292899

PATIENT
  Age: 68 Year
  Sex: Female
  Weight: 41.2 kg

DRUGS (3)
  1. TRASTUZUMAB PFIZER [Suspect]
     Active Substance: TRASTUZUMAB
     Indication: BREAST CANCER
     Dosage: 278 MG, DAILY
     Route: 041
     Dates: start: 20200421, end: 20201111
  2. PERJETA [Concomitant]
     Active Substance: PERTUZUMAB
     Dosage: UNK
  3. ADRIACIN [Suspect]
     Active Substance: DOXORUBICIN HYDROCHLORIDE
     Indication: BREAST CANCER
     Dosage: 88 MG, DAILY
     Route: 041
     Dates: start: 20200115, end: 20200318

REACTIONS (4)
  - Cardiac failure [Unknown]
  - Cardiomyopathy [Not Recovered/Not Resolved]
  - Lung disorder [Recovering/Resolving]
  - Pneumonia [Unknown]

NARRATIVE: CASE EVENT DATE: 20201223
